FAERS Safety Report 21460350 (Version 2)
Quarter: 2022Q4

REPORT INFORMATION
  Report Type: Report from Study
  Country: AU (occurrence: AU)
  Receive Date: 20221014
  Receipt Date: 20221027
  Transmission Date: 20230113
  Serious: Yes (Hospitalization)
  Sender: FDA-Public Use
  Company Number: AU-GILEAD-2022-0601269

PATIENT
  Sex: Male

DRUGS (10)
  1. SACITUZUMAB GOVITECAN [Suspect]
     Active Substance: SACITUZUMAB GOVITECAN
     Indication: Bladder cancer
     Dosage: 10 MG/KG, D1 AND D8, LAST DOSE PRIOR TO ONSET OF EVENT 04-OCT-2022
     Route: 042
     Dates: start: 20220831, end: 20221005
  2. OXYCODONE [Concomitant]
     Active Substance: OXYCODONE
     Indication: Pain
     Dosage: UNK
     Dates: start: 20220816
  3. OXYBUTYNIN [Concomitant]
     Active Substance: OXYBUTYNIN
     Indication: Pollakiuria
     Dosage: UNK
     Dates: start: 20220701
  4. PREGABALIN [Concomitant]
     Active Substance: PREGABALIN
     Indication: Pain
     Dosage: UNK
     Dates: start: 20211115
  5. TELMISARTAN [Concomitant]
     Active Substance: TELMISARTAN
     Indication: Hypertension
     Dosage: UNK
     Dates: start: 20210815
  6. ISOTRETINOIN [Concomitant]
     Active Substance: ISOTRETINOIN
     Indication: Rhinophyma
     Dosage: UNK
     Dates: start: 20200815
  7. POLYETHYLENE GLYCOLS [Concomitant]
     Active Substance: POLYETHYLENE GLYCOLS
     Indication: Constipation
     Dosage: UNK
     Dates: start: 20220830
  8. LORAZEPAM [Concomitant]
     Active Substance: LORAZEPAM
     Indication: Anxiety
     Dosage: UNK
     Dates: start: 20220816
  9. MIRTAZAPINE [Concomitant]
     Active Substance: MIRTAZAPINE
     Indication: Anxiety
     Dosage: UNK
     Dates: start: 20220921
  10. DIAZEPAM [Concomitant]
     Active Substance: DIAZEPAM
     Indication: Anxiety
     Dosage: UNK

REACTIONS (2)
  - Hydronephrosis [Unknown]
  - Pulmonary embolism [Unknown]

NARRATIVE: CASE EVENT DATE: 20221011
